FAERS Safety Report 18273909 (Version 1)
Quarter: 2020Q3

REPORT INFORMATION
  Report Type: Spontaneous
  Country: US (occurrence: US)
  Receive Date: 20200916
  Receipt Date: 20200916
  Transmission Date: 20201103
  Serious: No
  Sender: FDA-Public Use
  Company Number: US-UNITED THERAPEUTICS-UNT-2020-012368

PATIENT
  Age: 69 Year
  Sex: Male
  Weight: 60.95 kg

DRUGS (6)
  1. TYVASO [Suspect]
     Active Substance: TREPROSTINIL
     Dosage: 18?54 ?G, QID
     Dates: start: 2020
  2. TYVASO [Suspect]
     Active Substance: TREPROSTINIL
     Dosage: UNK
  3. TYVASO [Suspect]
     Active Substance: TREPROSTINIL
     Indication: PULMONARY ARTERIAL HYPERTENSION
     Dosage: UNK
     Dates: start: 20200811
  4. TYVASO [Suspect]
     Active Substance: TREPROSTINIL
     Dosage: 36 ?G (FREQUENCY: UNKNOWN)
     Dates: start: 20200817, end: 202008
  5. TYVASO [Suspect]
     Active Substance: TREPROSTINIL
     Dosage: 42 ?G
     Dates: start: 202008
  6. TYVASO [Suspect]
     Active Substance: TREPROSTINIL
     Dosage: 54 ?G, QID
     Dates: start: 202008, end: 202008

REACTIONS (8)
  - Joint injury [Unknown]
  - Stomatitis [Unknown]
  - Fall [Recovered/Resolved with Sequelae]
  - Skin abrasion [Unknown]
  - Dizziness postural [Unknown]
  - Migraine [Unknown]
  - Epistaxis [Unknown]
  - Throat irritation [Unknown]

NARRATIVE: CASE EVENT DATE: 2020
